FAERS Safety Report 25145574 (Version 5)
Quarter: 2025Q3

REPORT INFORMATION
  Report Type: Spontaneous
  Country: US (occurrence: US)
  Receive Date: 20250401
  Receipt Date: 20250710
  Transmission Date: 20251021
  Serious: No
  Sender: PFIZER
  Company Number: US-PFIZER INC-202500064377

PATIENT
  Age: 12 Year
  Sex: Male

DRUGS (5)
  1. GENOTROPIN [Suspect]
     Active Substance: SOMATROPIN
     Indication: Congenital osteodystrophy
     Dosage: 1.6 MG, 1X/DAY (INJECTION EVERY DAY)
     Dates: start: 2024
  2. SYNTHROID [Concomitant]
     Active Substance: LEVOTHYROXINE SODIUM
     Indication: Congenital osteodystrophy
     Route: 048
     Dates: start: 2015
  3. CALCITRIOL [Concomitant]
     Active Substance: CALCITRIOL
     Indication: Congenital osteodystrophy
     Dosage: 0.25 UG, 2X/DAY
     Route: 048
     Dates: start: 2015
  4. CALCIUM [Concomitant]
     Active Substance: CALCIUM
     Indication: Congenital osteodystrophy
     Dosage: 500 MG, 2X/DAY
     Route: 048
     Dates: start: 2015
  5. JORNAY PM EXTENDED-RELEASE [Concomitant]
     Active Substance: METHYLPHENIDATE HYDROCHLORIDE
     Indication: Attention deficit hyperactivity disorder
     Dosage: 20 MG, 1X/DAY
     Route: 048
     Dates: start: 2023

REACTIONS (4)
  - Drug dose omission by device [Unknown]
  - Wrong technique in device usage process [Unknown]
  - Device breakage [Unknown]
  - Off label use [Unknown]
